FAERS Safety Report 5217569-X (Version None)
Quarter: 2007Q1

REPORT INFORMATION
  Report Type: 
  Country: None (occurrence: None)
  Receive Date: 20070124
  Receipt Date: 20060404
  Transmission Date: 20070707
  Serious: No
  Sender: FDA-Public Use
  Company Number: US-GLAXOSMITHKLINE-A0600331A

PATIENT
  Age: 55 Year
  Sex: Male

DRUGS (14)
  1. PAXIL [Suspect]
     Indication: DEPRESSION
     Dosage: 25MG PER DAY
     Route: 048
     Dates: start: 20050802
  2. AVANDIA [Concomitant]
  3. LIPITOR [Concomitant]
  4. MAGNESIUM OXIDE [Concomitant]
  5. SPIRONOLACTONE [Concomitant]
  6. TOPAMAX [Concomitant]
  7. WARFARIN SODIUM [Concomitant]
  8. VITAMIN CAP [Concomitant]
  9. ASCORBIC ACID [Concomitant]
  10. TYLENOL W/ CODEINE [Concomitant]
  11. IBUPROFEN [Concomitant]
  12. TEMAZEPAM [Concomitant]
  13. UNKNOWN MEDICATION [Concomitant]
  14. MIGRANAL [Concomitant]

REACTIONS (5)
  - ANXIETY [None]
  - DISTURBANCE IN ATTENTION [None]
  - IMPAIRED DRIVING ABILITY [None]
  - OBSESSIVE-COMPULSIVE DISORDER [None]
  - PARANOIA [None]
